FAERS Safety Report 4662839-7 (Version None)
Quarter: 2005Q2

REPORT INFORMATION
  Report Type: 
  Country: None (occurrence: None)
  Receive Date: 20050502
  Receipt Date: 20050128
  Transmission Date: 20051028
  Serious: No
  Sender: FDA-Public Use
  Company Number: 200510746US

PATIENT
  Sex: Female

DRUGS (6)
  1. KETEK [Suspect]
     Indication: SINUSITIS
     Dosage: 800 MG QD PO
     Route: 048
     Dates: start: 20050124
  2. SYNTHROID [Concomitant]
  3. ZYRTEC [Concomitant]
  4. NASACORT [Concomitant]
  5. PANTOPRAZOLE SODIUM [Concomitant]
  6. MUSCLE RELAXANTS NOS [Concomitant]

REACTIONS (2)
  - DYSPNOEA [None]
  - HEART RATE IRREGULAR [None]
